FAERS Safety Report 10100386 (Version 1)
Quarter: 2014Q2

REPORT INFORMATION
  Report Type: Spontaneous
  Country: US (occurrence: US)
  Receive Date: 20140423
  Receipt Date: 20140423
  Transmission Date: 20141212
  Serious: No
  Sender: FDA-Public Use
  Company Number: US-ROXANE LABORATORIES, INC.-2014-RO-00662RO

PATIENT
  Age: 92 Year
  Sex: Female

DRUGS (5)
  1. LETROZOLE [Suspect]
     Indication: OVARIAN CANCER RECURRENT
     Dosage: 2.5 MG
     Route: 065
     Dates: start: 20140220, end: 20140312
  2. ALENDRONATE [Concomitant]
     Route: 065
  3. DONEPEZIL [Concomitant]
     Dosage: 23 MG
     Route: 065
  4. MOBIC [Concomitant]
     Route: 065
  5. NAMENDA [Concomitant]
     Dosage: 20 MG
     Route: 065

REACTIONS (1)
  - Hepatic enzyme increased [Recovered/Resolved]
